FAERS Safety Report 24685309 (Version 1)
Quarter: 2024Q4

REPORT INFORMATION
  Report Type: Spontaneous
  Country: CN (occurrence: CN)
  Receive Date: 20241202
  Receipt Date: 20241202
  Transmission Date: 20250115
  Serious: Yes (Other)
  Sender: NOVARTIS
  Company Number: CN-002147023-NVSC2024CN229003

PATIENT

DRUGS (1)
  1. ENTRESTO [Suspect]
     Active Substance: SACUBITRIL\VALSARTAN
     Indication: Acute myocardial infarction
     Dosage: 50 MG, BID (PER TIME)
     Route: 048

REACTIONS (2)
  - Renal impairment [Unknown]
  - Product use in unapproved indication [Unknown]
